FAERS Safety Report 7405951-1 (Version None)
Quarter: 2011Q2

REPORT INFORMATION
  Report Type: 
  Country: None (occurrence: None)
  Receive Date: 20110405
  Receipt Date: 20110405
  Transmission Date: 20111010
  Serious: Yes (Other)
  Sender: FDA-Public Use
  Company Number: None

PATIENT
  Sex: Male
  Weight: 58.9676 kg

DRUGS (2)
  1. COLCRYS [Suspect]
     Indication: PAIN
     Dosage: 2 PILLS PER DAY -MORN-NITE-  0.6 MG
     Dates: start: 20110301
  2. COLCRYS [Suspect]
     Indication: GOUT
     Dosage: 2 PILLS PER DAY -MORN-NITE-  0.6 MG
     Dates: start: 20110301

REACTIONS (2)
  - PRODUCT SUBSTITUTION ISSUE [None]
  - DRUG EFFECT DECREASED [None]
